FAERS Safety Report 24420387 (Version 2)
Quarter: 2024Q4

REPORT INFORMATION
  Report Type: Spontaneous
  Country: US (occurrence: US)
  Receive Date: 20241010
  Receipt Date: 20241230
  Transmission Date: 20250115
  Serious: Yes (Death, Hospitalization, Other)
  Sender: CIPLA
  Company Number: US-CIPLA LTD.-2024US11101

PATIENT

DRUGS (2)
  1. LISINOPRIL [Interacting]
     Active Substance: LISINOPRIL
     Route: 065
  2. VERAPAMIL [Interacting]
     Active Substance: VERAPAMIL HYDROCHLORIDE
     Dosage: MISSING VERAPAMIL SR 240 MG BOTTLE DESPITE A RECENT REFILL
     Route: 065

REACTIONS (5)
  - BRASH syndrome [Fatal]
  - Intestinal ischaemia [Fatal]
  - Blood lactic acid increased [Fatal]
  - Drug interaction [Fatal]
  - Intentional overdose [Fatal]
